FAERS Safety Report 14123094 (Version 1)
Quarter: 2017Q4

REPORT INFORMATION
  Report Type: Spontaneous
  Country: US (occurrence: US)
  Receive Date: 20171024
  Receipt Date: 20171024
  Transmission Date: 20180321
  Serious: Yes (Hospitalization, Other)
  Sender: FDA-Public Use
  Company Number: None

PATIENT
  Age: 22 Year
  Sex: Male
  Weight: 84.15 kg

DRUGS (3)
  1. HALOPERIDOL DECANOATE 100MG/ML [Suspect]
     Active Substance: HALOPERIDOL DECANOATE
     Indication: SCHIZOPHRENIA
     Dosage: STRENGTH FOR INTRA MUSCULAR USE ONLY ML?          QUANTITY:1 INJECTION(S);OTHER FREQUENCY:ONCE A MONTH;?
     Route: 030
     Dates: start: 20171016, end: 20171016
  2. AMBIEN [Concomitant]
     Active Substance: ZOLPIDEM TARTRATE
  3. LORAZEPAM. [Concomitant]
     Active Substance: LORAZEPAM

REACTIONS (11)
  - Insomnia [None]
  - Therapy change [None]
  - Tremor [None]
  - Nightmare [None]
  - Drug ineffective [None]
  - Vomiting [None]
  - Restlessness [None]
  - Aggression [None]
  - Anger [None]
  - Drug prescribing error [None]
  - Dyspnoea [None]

NARRATIVE: CASE EVENT DATE: 20150410
